FAERS Safety Report 5158426-7 (Version None)
Quarter: 2006Q4

REPORT INFORMATION
  Report Type: 
  Country: None (occurrence: None)
  Receive Date: 20061128
  Receipt Date: 20061122
  Transmission Date: 20070319
  Serious: Yes (Life-Threatening)
  Sender: FDA-Public Use
  Company Number: DE-BAYER-200611577BVD

PATIENT
  Age: 62 Year
  Sex: Male
  Weight: 66 kg

DRUGS (3)
  1. SORAFENIB [Suspect]
     Indication: MALIGNANT MELANOMA
     Dosage: TOTAL DAILY DOSE: 800 MG
     Route: 048
  2. PACLITAXEL [Suspect]
     Indication: MALIGNANT MELANOMA
     Route: 042
  3. CARBOPLATIN [Suspect]
     Indication: MALIGNANT MELANOMA
     Route: 042

REACTIONS (1)
  - NEUTROPENIA [None]
